FAERS Safety Report 5266492-3 (Version None)
Quarter: 2007Q1

REPORT INFORMATION
  Report Type: 
  Country: None (occurrence: None)
  Receive Date: 20070315
  Receipt Date: 20070302
  Transmission Date: 20070707
  Serious: Yes (Hospitalization, Disabling)
  Sender: FDA-Public Use
  Company Number: ES-ELI_LILLY_AND_COMPANY-ES200703000769

PATIENT
  Age: 40 Year
  Sex: Female

DRUGS (7)
  1. FORTEO [Suspect]
     Indication: OSTEOPOROSIS
     Dosage: 20 UG, DAILY (1/D)
     Route: 058
     Dates: start: 20051001, end: 20070102
  2. DICLOFENACO                        /00372302/ [Concomitant]
  3. CALCIUM [Concomitant]
  4. AZATHIOPRINE SODIUM [Concomitant]
  5. MULTIVITAMINS WITH MINERALS [Concomitant]
  6. LEVOCETIRIZINE [Concomitant]
  7. GLUCOSAMINE [Concomitant]
     Indication: INFLAMMATION

REACTIONS (2)
  - BLINDNESS [None]
  - RETINAL DETACHMENT [None]
